FAERS Safety Report 23067599 (Version 3)
Quarter: 2023Q4

REPORT INFORMATION
  Report Type: Spontaneous
  Country: US (occurrence: US)
  Receive Date: 20231016
  Receipt Date: 20231020
  Transmission Date: 20240110
  Serious: Yes (Other)
  Sender: FDA-Public Use
  Company Number: US-ABBVIE-5450374

PATIENT
  Age: 71 Year
  Sex: Female

DRUGS (2)
  1. RESTASIS [Suspect]
     Active Substance: CYCLOSPORINE
     Indication: Product used for unknown indication
     Dosage: STRENGTH 0.5MG/ML?1 DROP
     Route: 047
  2. RESTASIS [Suspect]
     Active Substance: CYCLOSPORINE
     Dosage: STRENGTH 0.5MG/ML
     Route: 047

REACTIONS (12)
  - Cataract [Unknown]
  - Depression [Unknown]
  - Product colour issue [Unknown]
  - Nausea [Unknown]
  - Drug ineffective [Unknown]
  - Visual impairment [Unknown]
  - Agitation [Unknown]
  - Hearing aid user [Unknown]
  - Headache [Not Recovered/Not Resolved]
  - Eye irritation [Unknown]
  - Purulence [Unknown]
  - Eye pain [Not Recovered/Not Resolved]

NARRATIVE: CASE EVENT DATE: 20230301
